FAERS Safety Report 4762498-9 (Version None)
Quarter: 2005Q3

REPORT INFORMATION
  Report Type: 
  Country: None (occurrence: None)
  Receive Date: 20050907
  Receipt Date: 20050830
  Transmission Date: 20060218
  Serious: Yes (Life-Threatening)
  Sender: FDA-Public Use
  Company Number: 200512931EU

PATIENT
  Age: 71 Year
  Sex: Male

DRUGS (3)
  1. RIFADIN [Suspect]
     Dosage: DOSE: UNK
     Dates: start: 20050513, end: 20050609
  2. VANCOMYCIN [Suspect]
     Dates: start: 20050513, end: 20050609
  3. GABAPENTIN [Suspect]
     Dates: start: 20050501, end: 20050609

REACTIONS (1)
  - NEUTROPENIA [None]
